FAERS Safety Report 6220555-4 (Version None)
Quarter: 2009Q2

REPORT INFORMATION
  Report Type: 
  Country: None (occurrence: None)
  Receive Date: 20090604
  Receipt Date: 20090526
  Transmission Date: 20091009
  Serious: Yes (Other)
  Sender: FDA-Public Use
  Company Number: CHPA2009US12572

PATIENT
  Age: 66 Year
  Sex: Female
  Weight: 131.1 kg

DRUGS (2)
  1. GAS-X EXTRA STR CHEWABLE [Suspect]
     Indication: FLATULENCE
     Dosage: 125 MG, QD, ORAL
     Route: 048
  2. GAS-X ULTRA STRENGTH (SIMETHICONE) SOFT GELATIN CAPSULE [Suspect]
     Indication: FLATULENCE
     Dosage: 180 MG, QD, ORAL
     Route: 048

REACTIONS (5)
  - HEART RATE INCREASED [None]
  - HYPERTENSION [None]
  - NERVOUSNESS [None]
  - PANIC ATTACK [None]
  - TREMOR [None]
